FAERS Safety Report 12317906 (Version 1)
Quarter: 2016Q2

REPORT INFORMATION
  Report Type: Spontaneous
  Country: US (occurrence: US)
  Receive Date: 20160429
  Receipt Date: 20160429
  Transmission Date: 20160815
  Serious: No
  Sender: FDA-Public Use
  Company Number: US-BAYER-2016-081931

PATIENT
  Age: 74 Year
  Sex: Female
  Weight: 65.76 kg

DRUGS (4)
  1. MIRALAX [Suspect]
     Active Substance: POLYETHYLENE GLYCOL 3350
     Indication: CONSTIPATION
     Dosage: UNK, QD
     Route: 048
     Dates: start: 201512
  2. MELOXICAM. [Concomitant]
     Active Substance: MELOXICAM
  3. BACLOPHEN [Concomitant]
  4. GABAPENTIN. [Concomitant]
     Active Substance: GABAPENTIN

REACTIONS (3)
  - Drug ineffective [None]
  - Faeces hard [None]
  - Product use issue [None]
